FAERS Safety Report 20127748 (Version 3)
Quarter: 2022Q1

REPORT INFORMATION
  Report Type: Spontaneous
  Country: HR (occurrence: HR)
  Receive Date: 20211129
  Receipt Date: 20220104
  Transmission Date: 20220423
  Serious: Yes (Hospitalization)
  Sender: FDA-Public Use
  Company Number: HR-BIOGEN-2021BI01070989

PATIENT
  Age: 18 Year
  Sex: Female

DRUGS (3)
  1. PLEGRIDY [Suspect]
     Active Substance: PEGINTERFERON BETA-1A
     Indication: Multiple sclerosis
     Dosage: ON DAY 0
     Route: 058
     Dates: start: 201907
  2. PLEGRIDY [Suspect]
     Active Substance: PEGINTERFERON BETA-1A
     Dosage: ON DAY 14
     Route: 058
  3. PLEGRIDY [Suspect]
     Active Substance: PEGINTERFERON BETA-1A
     Dosage: EVERY 14 DAYS
     Route: 058

REACTIONS (4)
  - Paraesthesia [Recovered/Resolved]
  - Corneal reflex decreased [Recovered/Resolved]
  - Multiple sclerosis [Unknown]
  - Pyrexia [Recovered/Resolved]

NARRATIVE: CASE EVENT DATE: 20191201
